FAERS Safety Report 19426081 (Version 1)
Quarter: 2021Q2

REPORT INFORMATION
  Report Type: Spontaneous
  Country: ZA (occurrence: ZA)
  Receive Date: 20210617
  Receipt Date: 20210617
  Transmission Date: 20210717
  Serious: Yes (Death)
  Sender: FDA-Public Use
  Company Number: ZA-NOVOPROD-820052

PATIENT
  Sex: Female

DRUGS (4)
  1. ECOTRIN [Concomitant]
     Active Substance: ASPIRIN
     Indication: ANTICOAGULANT THERAPY
     Dosage: 81 MG
     Route: 048
     Dates: end: 202104
  2. NOVORAPID [Suspect]
     Active Substance: INSULIN ASPART
     Indication: DIABETES MELLITUS
     Dosage: 100 IU
     Route: 058
     Dates: end: 202104
  3. NURIKA [Concomitant]
     Indication: EPILEPSY
     Dosage: 150 MG
     Route: 048
     Dates: end: 202104
  4. FUROSEMIDE. [Concomitant]
     Active Substance: FUROSEMIDE
     Indication: DIURETIC THERAPY
     Route: 048
     Dates: end: 202104

REACTIONS (1)
  - Arterial disorder [Fatal]
